FAERS Safety Report 23983467 (Version 1)
Quarter: 2024Q2

REPORT INFORMATION
  Report Type: Report from Study
  Country: CA (occurrence: CA)
  Receive Date: 20240617
  Receipt Date: 20240617
  Transmission Date: 20240716
  Serious: Yes (Other)
  Sender: FDA-Public Use
  Company Number: CA-ABBVIE-5799130

PATIENT
  Age: 71 Year
  Sex: Male

DRUGS (2)
  1. CARBIDOPA\LEVODOPA [Suspect]
     Active Substance: CARBIDOPA\LEVODOPA
     Indication: Parkinson^s disease
     Dosage: DUODOPA-LEVODOPA20MG/ML,CARBIDOPAMONOHYDRATE5MG/ML
     Route: 050
     Dates: start: 20230913
  2. CARBIDOPA\LEVODOPA [Suspect]
     Active Substance: CARBIDOPA\LEVODOPA

REACTIONS (10)
  - Loss of consciousness [Unknown]
  - Choking [Unknown]
  - Dyskinesia [Unknown]
  - Dysphonia [Unknown]
  - Device occlusion [Unknown]
  - Tremor [Unknown]
  - Stoma site discharge [Unknown]
  - Muscular weakness [Unknown]
  - Stoma site reaction [Unknown]
  - Device kink [Unknown]

NARRATIVE: CASE EVENT DATE: 20240301
